FAERS Safety Report 18463594 (Version 1)
Quarter: 2020Q4

REPORT INFORMATION
  Report Type: Spontaneous
  Country: US (occurrence: US)
  Receive Date: 20201104
  Receipt Date: 20201104
  Transmission Date: 20210114
  Serious: Yes (Hospitalization)
  Sender: FDA-Public Use
  Company Number: US-GLAXOSMITHKLINE-US2020216048

PATIENT
  Sex: Female

DRUGS (3)
  1. CALCITRIOL. [Suspect]
     Active Substance: CALCITRIOL
     Indication: MINERAL SUPPLEMENTATION
     Dosage: UNK
  2. TUMS [Suspect]
     Active Substance: CALCIUM CARBONATE
     Dosage: UNK, 3000 MG 4 TIMES A DAYWITH TAKING AN EXTRA 1000 IN-BETWEEN
  3. TUMS [Suspect]
     Active Substance: CALCIUM CARBONATE
     Indication: MINERAL SUPPLEMENTATION
     Dosage: UNK, QID, 1000 MG

REACTIONS (8)
  - Drug ineffective for unapproved indication [Unknown]
  - Abdominal pain [Unknown]
  - Overdose [Unknown]
  - Gastrointestinal pain [Unknown]
  - Product use in unapproved indication [Unknown]
  - Off label use [Unknown]
  - Abdominal pain upper [Unknown]
  - Pain [Unknown]
